FAERS Safety Report 7148162-X (Version None)
Quarter: 2010Q4

REPORT INFORMATION
  Report Type: 
  Country: None (occurrence: None)
  Receive Date: 20101209
  Receipt Date: 20101129
  Transmission Date: 20110411
  Serious: Yes (Other)
  Sender: FDA-Public Use
  Company Number: JP-SANOFI-AVENTIS-2010SA073576

PATIENT
  Age: 72 Year
  Sex: Male
  Weight: 52 kg

DRUGS (13)
  1. AMARYL [Suspect]
     Route: 048
     Dates: end: 20091223
  2. RIFABUTIN [Suspect]
     Indication: MYCOBACTERIUM AVIUM COMPLEX INFECTION
     Route: 048
     Dates: start: 20090226, end: 20090311
  3. RIFABUTIN [Suspect]
     Route: 048
     Dates: start: 20090312, end: 20090729
  4. RIFABUTIN [Suspect]
     Route: 048
     Dates: start: 20090730, end: 20100304
  5. ESANBUTOL [Suspect]
     Indication: MYCOBACTERIUM AVIUM COMPLEX INFECTION
     Route: 048
     Dates: end: 20100107
  6. KLARICID [Suspect]
     Indication: MYCOBACTERIUM AVIUM COMPLEX INFECTION
     Route: 048
  7. MUCOSOLVAN [Suspect]
     Indication: MYCOBACTERIUM AVIUM COMPLEX INFECTION
     Route: 048
  8. MUCODYNE [Suspect]
     Indication: MYCOBACTERIUM AVIUM COMPLEX INFECTION
     Route: 048
  9. BERIZYM [Suspect]
     Indication: MYCOBACTERIUM AVIUM COMPLEX INFECTION
     Route: 048
  10. HUSCODE [Suspect]
     Indication: MYCOBACTERIUM AVIUM COMPLEX INFECTION
     Route: 048
     Dates: end: 20090729
  11. HUSCODE [Suspect]
     Route: 048
     Dates: start: 20100730
  12. MUCOSTA [Suspect]
     Route: 065
  13. GARENOXACIN [Concomitant]
     Route: 031
     Dates: start: 20100206

REACTIONS (2)
  - UVEITIS [None]
  - VISUAL ACUITY REDUCED [None]
